FAERS Safety Report 9301356 (Version 1)
Quarter: 2013Q2

REPORT INFORMATION
  Report Type: Spontaneous
  Country: US (occurrence: None)
  Receive Date: 20130520
  Receipt Date: 20130520
  Transmission Date: 20140414
  Serious: Yes (Hospitalization)
  Sender: FDA-Public Use
  Company Number: None

PATIENT
  Age: 64 Year
  Sex: Male
  Weight: 75.1 kg

DRUGS (3)
  1. METHOTREXATE [Suspect]
  2. PROCARBAZINE [Suspect]
  3. DEXAMETHASONE [Concomitant]

REACTIONS (14)
  - Cardiac failure congestive [None]
  - Pulmonary embolism [None]
  - Deep vein thrombosis [None]
  - Performance status decreased [None]
  - Ileus [None]
  - Urosepsis [None]
  - Diarrhoea [None]
  - Drug clearance decreased [None]
  - Pleural effusion [None]
  - Atelectasis [None]
  - Mucosal inflammation [None]
  - Bone marrow failure [None]
  - Muscular weakness [None]
  - Peripheral sensorimotor neuropathy [None]
